FAERS Safety Report 12772761 (Version 1)
Quarter: 2016Q3

REPORT INFORMATION
  Report Type: Spontaneous
  Country: FR (occurrence: FR)
  Receive Date: 20160922
  Receipt Date: 20160922
  Transmission Date: 20161109
  Serious: Yes (Hospitalization)
  Sender: FDA-Public Use
  Company Number: FR-SA-2016SA170472

PATIENT
  Age: 56 Year
  Sex: Male

DRUGS (5)
  1. CEFAZOLINE PANPHARMA [Suspect]
     Active Substance: CEFAZOLIN SODIUM
     Indication: OSTEOMYELITIS
     Route: 048
     Dates: start: 20160707, end: 20160722
  2. GENTAMICIN. [Suspect]
     Active Substance: GENTAMICIN
     Indication: OSTEOMYELITIS
     Route: 042
     Dates: start: 20160707, end: 20160710
  3. SERESTA [Concomitant]
     Active Substance: OXAZEPAM
     Route: 048
  4. TEMESTA [Concomitant]
     Active Substance: LORAZEPAM
     Route: 048
  5. RIFATER [Suspect]
     Active Substance: ISONIAZID\PYRAZINAMIDE\RIFAMPIN
     Indication: OSTEOMYELITIS
     Route: 048
     Dates: start: 20160712, end: 20160722

REACTIONS (1)
  - Cholestasis [Recovering/Resolving]

NARRATIVE: CASE EVENT DATE: 201607
